FAERS Safety Report 6293585-4 (Version None)
Quarter: 2009Q3

REPORT INFORMATION
  Report Type: 
  Country: None (occurrence: None)
  Receive Date: 20090729
  Receipt Date: 20090717
  Transmission Date: 20100115
  Serious: Yes (Other)
  Sender: FDA-Public Use
  Company Number: 2009-02239

PATIENT
  Age: 72 Year
  Sex: Female
  Weight: 60 kg

DRUGS (13)
  1. VELCADE [Suspect]
     Indication: MULTIPLE MYELOMA
     Dosage: 1.9 MG, INTRAVENOUS; 1.5 MG, INTRAVENOUS
     Route: 042
     Dates: start: 20090217, end: 20090326
  2. VELCADE [Suspect]
     Indication: MULTIPLE MYELOMA
     Dosage: 1.9 MG, INTRAVENOUS; 1.5 MG, INTRAVENOUS
     Route: 042
     Dates: start: 20090413, end: 20090521
  3. INSULIN(INSULIN) [Suspect]
     Indication: DIABETES MELLITUS
     Dosage: 24 UL, SUBCUTANEOUS
     Route: 058
  4. DEXAMETHASONE [Concomitant]
  5. ASPIRIN [Concomitant]
  6. MUCOSTA (REBAMIPIDE) TABLET [Concomitant]
  7. DEPAS (ETIZOLAM) TABLET [Concomitant]
  8. BROTIZOLAM (BROTIZOLAM) TABLET [Concomitant]
  9. BAKTAR (SULFAMETHOXAZOLE, TRIMETHOPRIM) TABLET [Concomitant]
  10. LASIX [Concomitant]
  11. ZOVIRAX [Concomitant]
  12. GLYBURIDE [Concomitant]
  13. PIOGLITAZONE HCL [Concomitant]

REACTIONS (5)
  - DIZZINESS [None]
  - DRUG INTERACTION [None]
  - HYPOGLYCAEMIA [None]
  - MUSCULAR WEAKNESS [None]
  - OEDEMA PERIPHERAL [None]
